FAERS Safety Report 9302879 (Version 3)
Quarter: 2013Q3

REPORT INFORMATION
  Report Type: Spontaneous
  Country: US (occurrence: None)
  Receive Date: 20130517
  Receipt Date: 20130726
  Transmission Date: 20140515
  Serious: Yes (Hospitalization, Other)
  Sender: FDA-Public Use
  Company Number: ADR-2013-00836

PATIENT
  Age: 22 Year
  Sex: Male

DRUGS (3)
  1. BACLOFEN INTRATHECAL [Suspect]
     Indication: MUSCLE SPASTICITY
  2. ORAL BACLOFEN [Concomitant]
  3. UNSPECIFIED SEIZURE MEDICINE [Concomitant]

REACTIONS (6)
  - Tremor [None]
  - Ill-defined disorder [None]
  - Bronchitis [None]
  - Pneumonia [None]
  - Muscle spasticity [None]
  - Device malfunction [None]
